FAERS Safety Report 17590459 (Version 1)
Quarter: 2020Q1

REPORT INFORMATION
  Report Type: Spontaneous
  Country: US (occurrence: US)
  Receive Date: 20200325
  Receipt Date: 20200325
  Transmission Date: 20200409
  Serious: No
  Sender: FDA-Public Use
  Company Number: None

PATIENT
  Age: 50 Year
  Sex: Female

DRUGS (1)
  1. NUCALA [Suspect]
     Active Substance: MEPOLIZUMAB
     Dosage: ?          OTHER FREQUENCY:OTHER;?TREATMENT START DATE: 15-AUG-52019? ??
     Route: 058

REACTIONS (2)
  - Product dose omission [None]
  - Wrong technique in product usage process [None]

NARRATIVE: CASE EVENT DATE: 20200325
